FAERS Safety Report 8987636 (Version 1)
Quarter: 2012Q4

REPORT INFORMATION
  Report Type: 
  Country: US (occurrence: US)
  Receive Date: 20121227
  Receipt Date: 20121227
  Transmission Date: 20130627
  Serious: Yes (Other)
  Sender: FDA-Public Use
  Company Number: US-BAYER-2012-134394

PATIENT
  Sex: Female
  Weight: 54.42 kg

DRUGS (5)
  1. ASPIRIN [Suspect]
     Indication: ARTHRITIS
     Dosage: 1 DF, ONCE
     Route: 048
     Dates: start: 201211, end: 201211
  2. ASPIRIN [Suspect]
     Indication: ARTHRITIS
     Dosage: UNK
  3. BAYER CHEWABLE LOW DOSE BABY ASPIRIN TABLET ORANGE [Suspect]
     Dosage: UNK, ONCE
     Route: 048
     Dates: start: 201211, end: 201211
  4. BAYER CHEWABLE LOW DOSE BABY ASPIRIN TABLET ORANGE [Suspect]
     Dosage: UNK
  5. BAYER GENUINE ASPIRIN ORIGINAL STRENGTH [Concomitant]

REACTIONS (5)
  - Choking [Recovered/Resolved]
  - Retching [Recovered/Resolved]
  - Abdominal pain upper [Recovered/Resolved]
  - Abdominal pain upper [Recovered/Resolved]
  - Wrong technique in drug usage process [None]
